FAERS Safety Report 5839572-9 (Version None)
Quarter: 2008Q3

REPORT INFORMATION
  Report Type: 
  Country: None (occurrence: None)
  Receive Date: 20080811
  Receipt Date: 20080611
  Transmission Date: 20090109
  Serious: No
  Sender: FDA-Public Use
  Company Number: A0732455A

PATIENT
  Age: 44 Year
  Sex: Female

DRUGS (2)
  1. TREXIMET [Suspect]
     Indication: MIGRAINE
     Dosage: 1TAB AS REQUIRED
     Route: 048
     Dates: start: 20080501
  2. UNKNOWN [Concomitant]

REACTIONS (4)
  - CHEST DISCOMFORT [None]
  - HYPOAESTHESIA [None]
  - PAIN IN JAW [None]
  - SOMNOLENCE [None]
